FAERS Safety Report 8445969-3 (Version None)
Quarter: 2012Q2

REPORT INFORMATION
  Report Type: 
  Country: None (occurrence: None)
  Receive Date: 20120618
  Receipt Date: 20120613
  Transmission Date: 20120825
  Serious: Yes (Other)
  Sender: FDA-Public Use
  Company Number: US-PFIZER INC-2012143421

PATIENT
  Sex: Female
  Weight: 100 kg

DRUGS (7)
  1. CHANTIX [Suspect]
     Indication: SMOKING CESSATION THERAPY
     Dosage: 0.5 MG, DAILY
     Route: 048
     Dates: start: 20120522, end: 20120101
  2. OXYCODONE [Concomitant]
     Indication: PAIN
     Dosage: 15 MG, 3X/DAY
  3. ZANTAC [Concomitant]
     Indication: DYSPEPSIA
     Dosage: 150 MG, 2X/DAY
  4. METFORMIN [Concomitant]
     Indication: TYPE 2 DIABETES MELLITUS
     Dosage: 1000 MG, 2X/DAY
  5. CHANTIX [Suspect]
     Dosage: 0.5 MG, 2X/DAY
     Route: 048
     Dates: start: 20120101
  6. GABAPENTIN [Concomitant]
     Indication: NERVE INJURY
     Dosage: 300MG IN AM, 300MG IN THE AFTERNOON AND 900MG-1200MG IN PM
  7. JANUVIA [Concomitant]
     Indication: TYPE 2 DIABETES MELLITUS
     Dosage: 100 MG, DAILY

REACTIONS (1)
  - BLOOD GLUCOSE INCREASED [None]
